FAERS Safety Report 9563601 (Version 1)
Quarter: 2013Q3

REPORT INFORMATION
  Report Type: Spontaneous
  Country: US (occurrence: None)
  Receive Date: 20130926
  Receipt Date: 20130926
  Transmission Date: 20140515
  Serious: Yes (Life-Threatening, Hospitalization)
  Sender: FDA-Public Use
  Company Number: None

PATIENT
  Age: 68 Year
  Sex: Male

DRUGS (1)
  1. DABIGATRAN [Suspect]
     Route: 048
     Dates: start: 20120401, end: 20121002

REACTIONS (3)
  - Subdural haematoma [None]
  - Syncope [None]
  - Fall [None]
